FAERS Safety Report 14492573 (Version 1)
Quarter: 2018Q1

REPORT INFORMATION
  Report Type: Spontaneous
  Country: DE (occurrence: DE)
  Receive Date: 20180206
  Receipt Date: 20180206
  Transmission Date: 20180509
  Serious: Yes (Hospitalization)
  Sender: FDA-Public Use
  Company Number: DE-TEVA-2018-DE-852825

PATIENT
  Age: 60 Year
  Sex: Female
  Weight: 65 kg

DRUGS (3)
  1. PACLITAXEL. [Suspect]
     Active Substance: PACLITAXEL
     Indication: OVARIAN CANCER
     Dosage: 317 MG, EVERY 3 WEEKS
     Dates: start: 20171004
  2. CARBOPLATIN. [Suspect]
     Active Substance: CARBOPLATIN
     Indication: OVARIAN CANCER
     Dosage: 569 MG, EVERY 3 WEEKS
     Dates: start: 20171004
  3. COTRIMAZOL [Concomitant]
     Indication: FUNGAL INFECTION
     Dosage: UNK UNK, 2X/DAY
     Route: 061
     Dates: start: 20171108

REACTIONS (2)
  - Pyrexia [Recovered/Resolved]
  - Diarrhoea [Recovered/Resolved]

NARRATIVE: CASE EVENT DATE: 20171115
